FAERS Safety Report 13401203 (Version 3)
Quarter: 2017Q2

REPORT INFORMATION
  Report Type: Spontaneous
  Country: US (occurrence: US)
  Receive Date: 20170404
  Receipt Date: 20170411
  Transmission Date: 20170830
  Serious: No
  Sender: FDA-Public Use
  Company Number: US-BAYER-2017-063904

PATIENT
  Sex: Female

DRUGS (5)
  1. MIRALAX [Suspect]
     Active Substance: POLYETHYLENE GLYCOL 3350
     Indication: COLONOSCOPY
  2. HYDROCORTISONE. [Concomitant]
     Active Substance: HYDROCORTISONE
  3. BENEFIBER [Concomitant]
     Active Substance: STARCH, WHEAT
  4. MIRALAX [Suspect]
     Active Substance: POLYETHYLENE GLYCOL 3350
     Indication: GASTROINTESTINAL DISORDER
     Dosage: UNK
     Route: 048
  5. LAXATIVE [Concomitant]
     Active Substance: UNSPECIFIED INGREDIENT

REACTIONS (11)
  - Underdose [Unknown]
  - Product use issue [Unknown]
  - Diarrhoea [Unknown]
  - Pollakiuria [Unknown]
  - Haemorrhoids [Unknown]
  - Nausea [Unknown]
  - Wrong technique in product usage process [Unknown]
  - Hypophagia [Unknown]
  - Abdominal pain [Unknown]
  - Skin fissures [Unknown]
  - Off label use [Unknown]
